FAERS Safety Report 24327950 (Version 1)
Quarter: 2024Q3

REPORT INFORMATION
  Report Type: Spontaneous
  Country: US (occurrence: None)
  Receive Date: 20240916
  Receipt Date: 20240916
  Transmission Date: 20241017
  Serious: Yes (Disabling)
  Sender: Public
  Company Number: None

PATIENT
  Age: 41 Year
  Sex: Female
  Weight: 75.15 kg

DRUGS (5)
  1. IVERMECTIN\METRONIDAZOLE\NIACINAMIDE [Suspect]
     Active Substance: IVERMECTIN\METRONIDAZOLE\NIACINAMIDE
     Indication: Rosacea
     Dosage: OTHER STRENGTH : I PUMP;?FREQUENCY : AT BEDTIME;?
     Route: 061
     Dates: start: 20240728, end: 20240916
  2. HYDROCHLOROTHIAZIDE [Concomitant]
     Active Substance: HYDROCHLOROTHIAZIDE
  3. daily vitamin gummies [Concomitant]
  4. PROBIOTICS NOS [Concomitant]
     Active Substance: PROBIOTICS NOS
  5. ALLEGRA [Concomitant]
     Active Substance: FEXOFENADINE HYDROCHLORIDE

REACTIONS (6)
  - Paraesthesia [None]
  - Hypoaesthesia [None]
  - Hypoaesthesia [None]
  - Sleep disorder [None]
  - Mobility decreased [None]
  - Therapy cessation [None]

NARRATIVE: CASE EVENT DATE: 20240828
